FAERS Safety Report 16332855 (Version 1)
Quarter: 2019Q2

REPORT INFORMATION
  Report Type: Spontaneous
  Country: US (occurrence: US)
  Receive Date: 20190520
  Receipt Date: 20190520
  Transmission Date: 20190711
  Serious: No
  Sender: FDA-Public Use
  Company Number: US-PFIZER INC-2019213941

PATIENT
  Sex: Female
  Weight: 65.77 kg

DRUGS (1)
  1. IBUPROFEN. [Suspect]
     Active Substance: IBUPROFEN
     Indication: NEURALGIA
     Dosage: 200 MG, 4X/DAY (EVERY 6 HOURS)

REACTIONS (2)
  - Drug ineffective [Unknown]
  - Product use issue [Unknown]
